FAERS Safety Report 7415173-6 (Version None)
Quarter: 2011Q2

REPORT INFORMATION
  Report Type: 
  Country: None (occurrence: None)
  Receive Date: 20110414
  Receipt Date: 20110405
  Transmission Date: 20111010
  Serious: Yes (Other)
  Sender: FDA-Public Use
  Company Number: PHHY2011US28807

PATIENT
  Age: 67 Year
  Sex: Female

DRUGS (5)
  1. EXELON [Suspect]
     Dosage: 4.6 MG, ONCE DAILY
     Route: 062
  2. LIPITOR [Concomitant]
  3. IBUPROFEN [Concomitant]
     Dosage: 1 OR 2 TABLETS, PRN
  4. GLUCOSAMINE /CHONDROITIN /MSM [Concomitant]
  5. ATENOLOL [Concomitant]

REACTIONS (5)
  - GINGIVAL INFECTION [None]
  - HYPERTENSION [None]
  - TOOTH DISORDER [None]
  - VISUAL IMPAIRMENT [None]
  - WEIGHT DECREASED [None]
